FAERS Safety Report 5306610-1 (Version None)
Quarter: 2007Q2

REPORT INFORMATION
  Report Type: 
  Country: None (occurrence: None)
  Receive Date: 20070418
  Receipt Date: 20070410
  Transmission Date: 20071010
  Serious: Yes (Hospitalization)
  Sender: FDA-Public Use
  Company Number: GXKR2007GB03328

PATIENT
  Age: 41 Year
  Sex: Female

DRUGS (2)
  1. METRONIDAZOLE [Suspect]
     Indication: PELVIC INFLAMMATORY DISEASE
     Dosage: 400 MG, ORAL
     Route: 048
     Dates: start: 20070313, end: 20070315
  2. CYCLIZINE (CYCLIZINE) [Concomitant]

REACTIONS (1)
  - HALLUCINATION, VISUAL [None]
